FAERS Safety Report 9000335 (Version 3)
Quarter: 2013Q1

REPORT INFORMATION
  Report Type: Spontaneous
  Country: US (occurrence: None)
  Receive Date: 20121221
  Receipt Date: 20130204
  Transmission Date: 20140127
  Serious: Yes (Hospitalization, Other)
  Sender: FDA-Public Use
  Company Number: US-1195699

PATIENT
  Age: 90 Year
  Sex: Female

DRUGS (1)
  1. LATANOPROST 0.005 % OPHTHALMIC SOLUTION [Suspect]
     Indication: GLAUCOMA
     Dosage: (1 GTT QD OU OPHTHALMIC)
     Route: 047
     Dates: start: 20121018, end: 20121108

REACTIONS (9)
  - Dyspnoea [None]
  - Gastrointestinal haemorrhage [None]
  - Anaemia [None]
  - Wheezing [None]
  - Blood pressure systolic decreased [None]
  - Insomnia [None]
  - Gastritis [None]
  - Gastrointestinal tract irritation [None]
  - Speech disorder [None]
